FAERS Safety Report 8729389 (Version 6)
Quarter: 2013Q1

REPORT INFORMATION
  Report Type: Spontaneous
  Country: US (occurrence: US)
  Receive Date: 20120817
  Receipt Date: 20130326
  Transmission Date: 20140127
  Serious: Yes (Other)
  Sender: FDA-Public Use
  Company Number: US-PFIZER INC-2012200609

PATIENT
  Age: 60 Year
  Sex: Female
  Weight: 95.24 kg

DRUGS (4)
  1. NORVASC [Suspect]
     Indication: BLOOD PRESSURE ABNORMAL
     Dosage: 5 MG, DAILY
  2. NORVASC [Suspect]
     Dosage: 5 MG, DAILY
  3. PROTONIX [Suspect]
     Indication: GASTROOESOPHAGEAL REFLUX DISEASE
     Dosage: 40 MG, 2X/DAY
  4. PROTONIX [Suspect]
     Dosage: 40 MG, 2X/DAY
     Dates: end: 201212

REACTIONS (5)
  - Cerebral disorder [Unknown]
  - Upper limb fracture [Unknown]
  - Fall [Unknown]
  - Abdominal discomfort [Unknown]
  - Abdominal pain upper [Unknown]
